FAERS Safety Report 7574281-X (Version None)
Quarter: 2011Q2

REPORT INFORMATION
  Report Type: 
  Country: None (occurrence: None)
  Receive Date: 20110627
  Receipt Date: 20110608
  Transmission Date: 20111010
  Serious: Yes (Death, Other)
  Sender: FDA-Public Use
  Company Number: US-BAYER-201041856NA

PATIENT
  Age: 76 Year
  Sex: Female
  Weight: 96.145 kg

DRUGS (7)
  1. NAPROXEN (ALEVE) [Concomitant]
  2. TRASYLOL [Suspect]
     Indication: AORTIC VALVE REPLACEMENT
  3. FUROSEMIDE [Concomitant]
     Dosage: 20 MG, QD
  4. TRASYLOL [Suspect]
     Indication: CORONARY ARTERY BYPASS
     Route: 042
     Dates: start: 20041004
  5. LISINOPRIL [Concomitant]
     Dosage: 20 MG, QD
  6. EXTRA STRENGTH TYLENOL [Concomitant]
  7. LIPITOR [Concomitant]
     Dosage: 40 MG, QD

REACTIONS (14)
  - DEATH [None]
  - RENAL IMPAIRMENT [None]
  - ASPIRATION [None]
  - RENAL FAILURE [None]
  - EMOTIONAL DISTRESS [None]
  - PAIN [None]
  - RESPIRATORY DISTRESS [None]
  - MULTI-ORGAN FAILURE [None]
  - FEAR [None]
  - RENAL INJURY [None]
  - STRESS [None]
  - ANXIETY [None]
  - UNEVALUABLE EVENT [None]
  - POST PROCEDURAL HAEMATOMA [None]
